FAERS Safety Report 4922571-9 (Version None)
Quarter: 2006Q1

REPORT INFORMATION
  Report Type: 
  Country: None (occurrence: None)
  Receive Date: 20060224
  Receipt Date: 20060209
  Transmission Date: 20060701
  Serious: Yes (Other)
  Sender: FDA-Public Use
  Company Number: US-GLAXOSMITHKLINE-A0594846A

PATIENT
  Sex: Female

DRUGS (9)
  1. FLOVENT [Suspect]
     Indication: ASTHMA
     Dosage: 88MCG PER DAY
     Route: 055
     Dates: start: 20060127
  2. ADVAIR DISKUS 100/50 [Suspect]
     Indication: ASTHMA
     Route: 055
     Dates: start: 20051201, end: 20051201
  3. FLONASE [Suspect]
     Dosage: 4SPR PER DAY
     Route: 045
  4. DOXYCYCLINE [Concomitant]
  5. PROVENTIL [Concomitant]
  6. LEVOXYL [Concomitant]
  7. RHINOCORT [Concomitant]
  8. ZYRTEC [Concomitant]
  9. METRONIDAZOLE [Concomitant]

REACTIONS (10)
  - ABDOMINAL PAIN UPPER [None]
  - BRONCHITIS [None]
  - COLITIS [None]
  - DRUG INEFFECTIVE [None]
  - DYSPNOEA [None]
  - HAEMATOCHEZIA [None]
  - HEADACHE [None]
  - PHARYNGOLARYNGEAL PAIN [None]
  - RESPIRATORY TRACT INFECTION [None]
  - SENSATION OF FOREIGN BODY [None]
